FAERS Safety Report 10021184 (Version 1)
Quarter: 2014Q1

REPORT INFORMATION
  Report Type: Spontaneous
  Country: IT (occurrence: None)
  Receive Date: 20140313
  Receipt Date: 20140313
  Transmission Date: 20141002
  Serious: Yes (Other)
  Sender: FDA-Public Use
  Company Number: 2222466

PATIENT
  Age: 51 Year
  Sex: Female
  Weight: 57 kg

DRUGS (3)
  1. DOCETAXEL [Suspect]
     Indication: BREAST CANCER
     Dosage: 160 MG MILLIGRAM (S), CYCLICAL, INTRAVENOUS
     Route: 042
     Dates: start: 20140127, end: 20140127
  2. RANITIDINE [Concomitant]
  3. ONDANSETRON [Concomitant]

REACTIONS (9)
  - Skin fissures [None]
  - Vaginal inflammation [None]
  - Stomatitis [None]
  - Arthralgia [None]
  - Paraesthesia [None]
  - Neutropenia [None]
  - Skin toxicity [None]
  - Erythema [None]
  - Lip injury [None]
